FAERS Safety Report 17395754 (Version 1)
Quarter: 2020Q1

REPORT INFORMATION
  Report Type: Spontaneous
  Country: DE (occurrence: DE)
  Receive Date: 20200210
  Receipt Date: 20200210
  Transmission Date: 20200409
  Serious: Yes (Other)
  Sender: FDA-Public Use
  Company Number: NVSC2020DE032298

PATIENT
  Age: 76 Year
  Sex: Male

DRUGS (1)
  1. DOXYCYCLIN 100 - 1 A PHARMA [Suspect]
     Active Substance: DOXYCYCLINE
     Indication: PROSTATITIS
     Dosage: 100 OT, BID (1-0-1) (FOR 4 WEEKS)
     Route: 065

REACTIONS (2)
  - Neovascular age-related macular degeneration [Unknown]
  - Visual impairment [Unknown]
